FAERS Safety Report 7632031-2 (Version None)
Quarter: 2011Q3

REPORT INFORMATION
  Report Type: 
  Country: None (occurrence: None)
  Receive Date: 20110725
  Receipt Date: 20100601
  Transmission Date: 20111222
  Serious: Yes (Hospitalization)
  Sender: FDA-Public Use
  Company Number: US-BRISTOL-MYERS SQUIBB COMPANY-15127855

PATIENT
  Age: 74 Year
  Sex: Female
  Weight: 89 kg

DRUGS (11)
  1. HYDROCHLORIC ACID [Concomitant]
  2. SIMVASTATIN [Concomitant]
  3. METFORMIN HCL [Concomitant]
  4. POTASSIUM [Concomitant]
  5. CLONIDINE [Concomitant]
  6. DIPHENOXYLATE [Concomitant]
  7. PROTONIX [Concomitant]
  8. LASIX [Concomitant]
  9. COUMADIN [Suspect]
     Indication: PULMONARY THROMBOSIS
  10. CARVEDILOL [Concomitant]
  11. ATROPINE SULFATE [Concomitant]

REACTIONS (3)
  - DIARRHOEA [None]
  - INTERNATIONAL NORMALISED RATIO INCREASED [None]
  - OEDEMA PERIPHERAL [None]
